FAERS Safety Report 4768503-8 (Version None)
Quarter: 2005Q3

REPORT INFORMATION
  Report Type: 
  Country: None (occurrence: None)
  Receive Date: 20050914
  Receipt Date: 20050912
  Transmission Date: 20060218
  Serious: Yes (Other)
  Sender: FDA-Public Use
  Company Number: AU-SANOFI-SYNTHELABO-F01200501856

PATIENT
  Sex: Male

DRUGS (3)
  1. OXALIPLATIN [Suspect]
     Indication: COLON CANCER
     Route: 042
     Dates: start: 20050426, end: 20050830
  2. CAPECITABINE [Suspect]
     Dosage: 2150 MG TWICE DAILY FOR 2 WEEKS, Q3W
     Route: 048
     Dates: start: 20050426, end: 20050830
  3. BEVACIZUMAB [Suspect]
     Route: 042
     Dates: start: 20050426, end: 20050830

REACTIONS (1)
  - DIABETES MELLITUS [None]
